FAERS Safety Report 7068215-4 (Version None)
Quarter: 2010Q4

REPORT INFORMATION
  Report Type: 
  Country: None (occurrence: None)
  Receive Date: 20101028
  Receipt Date: 20101019
  Transmission Date: 20110411
  Serious: Yes (Hospitalization)
  Sender: FDA-Public Use
  Company Number: US-ROCHE-728005

PATIENT
  Sex: Female
  Weight: 54.4 kg

DRUGS (2)
  1. CAPECITABINE [Suspect]
     Route: 048
     Dates: start: 20100720, end: 20100826
  2. COUMADIN [Concomitant]

REACTIONS (6)
  - ABDOMINAL DISTENSION [None]
  - AMNESIA [None]
  - DEHYDRATION [None]
  - DIARRHOEA [None]
  - FATIGUE [None]
  - PSYCHOTIC DISORDER [None]
